FAERS Safety Report 6782144-2 (Version None)
Quarter: 2010Q2

REPORT INFORMATION
  Report Type: 
  Country: None (occurrence: None)
  Receive Date: 20100621
  Receipt Date: 20100618
  Transmission Date: 20101027
  Serious: Yes (Hospitalization, Disabling, Other)
  Sender: FDA-Public Use
  Company Number: US-MERCK-0908USA01681

PATIENT
  Age: 50 Year
  Sex: Female
  Weight: 70 kg

DRUGS (5)
  1. FOSAMAX [Suspect]
     Indication: OSTEOPOROSIS
     Route: 048
     Dates: start: 20030201, end: 20060101
  2. FOSAMAX [Suspect]
     Indication: RHEUMATOID ARTHRITIS
     Route: 048
     Dates: start: 20030201, end: 20060101
  3. CORTICOSTEROIDS (UNSPECIFIED) [Concomitant]
     Route: 065
     Dates: start: 19970101
  4. NAPROSYN [Concomitant]
     Route: 065
  5. METHOTREXATE [Concomitant]
     Route: 065

REACTIONS (33)
  - ABSCESS [None]
  - ANAEMIA OF CHRONIC DISEASE [None]
  - ARTHROPOD STING [None]
  - ASPERGILLOSIS [None]
  - COCCIDIOIDOMYCOSIS [None]
  - COSTOCHONDRITIS [None]
  - DENTAL CARIES [None]
  - ENDOMETRIAL HYPERTROPHY [None]
  - EXOSTOSIS [None]
  - EYE PAIN [None]
  - FISTULA DISCHARGE [None]
  - GASTROOESOPHAGEAL REFLUX DISEASE [None]
  - HAEMATOCHEZIA [None]
  - HEADACHE [None]
  - HIATUS HERNIA [None]
  - HYPERHIDROSIS [None]
  - HYPOKALAEMIA [None]
  - KERATOCONJUNCTIVITIS SICCA [None]
  - LYMPHADENOPATHY [None]
  - MYALGIA [None]
  - NAUSEA [None]
  - OEDEMA PERIPHERAL [None]
  - OSTEONECROSIS OF JAW [None]
  - PERIODONTITIS [None]
  - PULMONARY MASS [None]
  - RENAL FAILURE ACUTE [None]
  - SYNOVITIS [None]
  - TOOTH DISORDER [None]
  - TOOTH FRACTURE [None]
  - TREATMENT NONCOMPLIANCE [None]
  - UTERINE DISORDER [None]
  - UTERINE POLYP [None]
  - VISION BLURRED [None]
